FAERS Safety Report 8096662-0 (Version None)
Quarter: 2012Q1

REPORT INFORMATION
  Report Type: 
  Country: None (occurrence: None)
  Receive Date: 20120129
  Receipt Date: 20111130
  Transmission Date: 20120608
  Serious: No
  Sender: FDA-Public Use
  Company Number: US-ABBOTT-11P-163-0880247-00

PATIENT
  Sex: Female
  Weight: 80.812 kg

DRUGS (4)
  1. TRENTAL [Concomitant]
     Indication: PRODUCT USED FOR UNKNOWN INDICATION
  2. HUMIRA [Suspect]
     Indication: RHEUMATOID ARTHRITIS
  3. CLINORIL [Concomitant]
     Indication: ANTIINFLAMMATORY THERAPY
  4. HUMIRA [Suspect]
     Indication: PSORIASIS
     Dates: start: 20111001

REACTIONS (1)
  - NASOPHARYNGITIS [None]
